FAERS Safety Report 8137935-2 (Version None)
Quarter: 2012Q1

REPORT INFORMATION
  Report Type: 
  Country: None (occurrence: None)
  Receive Date: 20120215
  Receipt Date: 20120206
  Transmission Date: 20120608
  Serious: No
  Sender: FDA-Public Use
  Company Number: US-B.I. PHARMACEUTICALS,INC./RIDGEFIELD-2012-BP-02266BP

PATIENT
  Age: 42 Year
  Sex: Female

DRUGS (3)
  1. NEXIUM [Concomitant]
  2. ZANTAC 150 [Suspect]
     Indication: DYSPEPSIA
     Dosage: 300 MG
     Route: 048
  3. ZANTAC 150 [Suspect]

REACTIONS (1)
  - DRUG INEFFECTIVE [None]
